FAERS Safety Report 15818942 (Version 4)
Quarter: 2019Q1

REPORT INFORMATION
  Report Type: Spontaneous
  Country: US (occurrence: US)
  Receive Date: 20190114
  Receipt Date: 20190206
  Transmission Date: 20190417
  Serious: Yes (Hospitalization, Other)
  Sender: FDA-Public Use
  Company Number: US-SHIRE-US201901138

PATIENT
  Age: 3 Year
  Sex: Male

DRUGS (1)
  1. ELAPRASE [Suspect]
     Active Substance: IDURSULFASE
     Indication: MUCOPOLYSACCHARIDOSIS II
     Dosage: 2 DF, 1X/WEEK
     Route: 042
     Dates: start: 20180124

REACTIONS (4)
  - Viral infection [Recovering/Resolving]
  - Ear infection [Recovered/Resolved]
  - Conjunctivitis [Recovering/Resolving]
  - Anaemia [Recovered/Resolved]

NARRATIVE: CASE EVENT DATE: 20190102
